FAERS Safety Report 13851686 (Version 1)
Quarter: 2017Q3

REPORT INFORMATION
  Report Type: Report from Study
  Country: BR (occurrence: BR)
  Receive Date: 20170810
  Receipt Date: 20170810
  Transmission Date: 20171127
  Serious: Yes (Other)
  Sender: FDA-Public Use
  Company Number: BR-AMGEN-BRASL2017119455

PATIENT
  Age: 59 Year
  Sex: Female
  Weight: 54 kg

DRUGS (2)
  1. FORTEO [Concomitant]
     Active Substance: TERIPARATIDE
     Indication: OSTEOPOROSIS POSTMENOPAUSAL
     Dosage: UNK
  2. PROLIA [Suspect]
     Active Substance: DENOSUMAB
     Indication: OSTEOPOROSIS
     Dosage: UNK UNK, Q6MO
     Route: 058

REACTIONS (3)
  - Multiple fractures [Unknown]
  - Fall [Unknown]
  - Spinal fracture [Unknown]

NARRATIVE: CASE EVENT DATE: 2016
